FAERS Safety Report 5259688-8 (Version None)
Quarter: 2007Q1

REPORT INFORMATION
  Report Type: 
  Country: None (occurrence: None)
  Receive Date: 20070307
  Receipt Date: 20070221
  Transmission Date: 20070707
  Serious: Yes (Hospitalization)
  Sender: FDA-Public Use
  Company Number: 07US000873

PATIENT
  Age: 73 Year
  Sex: Female

DRUGS (2)
  1. LITHIUM CARBONATE [Suspect]
     Indication: BIPOLAR DISORDER
  2. SYNTHROID [Concomitant]

REACTIONS (8)
  - COORDINATION ABNORMAL [None]
  - DRUG TOXICITY [None]
  - DYSARTHRIA [None]
  - ENCEPHALOPATHY [None]
  - HYPERREFLEXIA [None]
  - INFECTION [None]
  - MUSCLE RIGIDITY [None]
  - MUTISM [None]
